FAERS Safety Report 4383662-7 (Version None)
Quarter: 2004Q2

REPORT INFORMATION
  Report Type: 
  Country: None (occurrence: None)
  Receive Date: 20040623
  Receipt Date: 20040610
  Transmission Date: 20050107
  Serious: Yes (Other)
  Sender: FDA-Public Use
  Company Number: GB-GLAXOSMITHKLINE-B0335422A

PATIENT
  Age: 57 Year
  Sex: Male

DRUGS (5)
  1. AVANDIA [Suspect]
     Indication: DIABETES MELLITUS
     Route: 048
     Dates: start: 20040528, end: 20040603
  2. CETIRIZINE HCL [Concomitant]
     Route: 065
     Dates: start: 20040511
  3. PERGOLIDE MESYLATE [Concomitant]
     Route: 065
     Dates: start: 20020402
  4. MONTELUKAST SODIUM [Concomitant]
     Route: 065
     Dates: start: 20021111
  5. METFORMIN HCL [Concomitant]
     Dosage: 2UNIT TWICE PER DAY
     Route: 065
     Dates: start: 20040120

REACTIONS (1)
  - DYSPNOEA [None]
